FAERS Safety Report 24266924 (Version 2)
Quarter: 2025Q2

REPORT INFORMATION
  Report Type: Report from Study
  Country: DE (occurrence: DE)
  Receive Date: 20240830
  Receipt Date: 20250404
  Transmission Date: 20250717
  Serious: Yes (Death, Other)
  Sender: AUROBINDO
  Company Number: DE-SANDOZ-SDZ2024DE072954

PATIENT
  Age: 89 Year
  Sex: Male

DRUGS (2)
  1. DIAZEPAM [Suspect]
     Active Substance: DIAZEPAM
     Indication: Chronic kidney disease
     Route: 065
  2. TRAMADOL [Suspect]
     Active Substance: TRAMADOL
     Indication: Chronic kidney disease
     Route: 065

REACTIONS (2)
  - Chronic kidney disease [Fatal]
  - Respiratory depression [Fatal]
